FAERS Safety Report 9527574 (Version 1)
Quarter: 2013Q1

REPORT INFORMATION
  Report Type: Spontaneous
  Country: US (occurrence: None)
  Receive Date: 20130314
  Receipt Date: 20130314
  Transmission Date: 20140127
  Serious: No
  Sender: FDA-Public Use
  Company Number: 1212USA008815

PATIENT
  Age: 41 Year
  Sex: Female

DRUGS (6)
  1. VICTRELIS [Suspect]
     Indication: HEPATITIS C
     Dosage: 400 MG, (2DF) TID, ORAL
     Route: 048
     Dates: start: 20121211
  2. PEGASYS [Suspect]
     Dates: start: 20121105
  3. RIBAVIRIN [Suspect]
     Route: 048
     Dates: start: 20121105
  4. NOVOLOG (INSULIN ASPART) [Concomitant]
  5. OMEPRAZOLE [Concomitant]
  6. NADILOL [Concomitant]

REACTIONS (2)
  - Proctalgia [None]
  - Adverse event [None]
